FAERS Safety Report 25229679 (Version 1)
Quarter: 2025Q2

REPORT INFORMATION
  Report Type: Spontaneous
  Country: AU (occurrence: AU)
  Receive Date: 20250423
  Receipt Date: 20250423
  Transmission Date: 20250716
  Serious: Yes (Other)
  Sender: ACCORD
  Company Number: None

PATIENT
  Sex: Female

DRUGS (1)
  1. PACLITAXEL [Suspect]
     Active Substance: PACLITAXEL
     Indication: Product used for unknown indication

REACTIONS (6)
  - Chest discomfort [Unknown]
  - Feeling hot [Unknown]
  - Flushing [Unknown]
  - Loss of consciousness [Unknown]
  - Nausea [Unknown]
  - Oropharyngeal discomfort [Unknown]
